FAERS Safety Report 7121648-X (Version None)
Quarter: 2010Q4

REPORT INFORMATION
  Report Type: 
  Country: None (occurrence: None)
  Receive Date: 20101124
  Receipt Date: 20101112
  Transmission Date: 20110411
  Serious: No
  Sender: FDA-Public Use
  Company Number: US-PFIZER INC-2010150395

PATIENT
  Sex: Female
  Weight: 54.422 kg

DRUGS (3)
  1. PRISTIQ [Suspect]
     Indication: MENOPAUSAL SYMPTOMS
     Dosage: 50 MG, 1X/DAY
     Dates: start: 20101025
  2. MAXALT [Concomitant]
     Indication: MIGRAINE
     Dosage: UNK
  3. LEVOTHYROXINE [Concomitant]
     Indication: THYROID DISORDER
     Dosage: UNK

REACTIONS (4)
  - HEADACHE [None]
  - HEART RATE INCREASED [None]
  - MIGRAINE [None]
  - VOMITING [None]
